FAERS Safety Report 4455632-1 (Version None)
Quarter: 2004Q3

REPORT INFORMATION
  Report Type: 
  Country: None (occurrence: None)
  Receive Date: 20040917
  Receipt Date: 20040906
  Transmission Date: 20050211
  Serious: No
  Sender: FDA-Public Use
  Company Number: 04P-167-0262108-00

PATIENT
  Sex: Female

DRUGS (8)
  1. HUMIRA [Suspect]
     Indication: RHEUMATOID ARTHRITIS
     Dosage: 40 MG, 1 IN 2 WK, SUBCUTANEOUS
     Route: 058
  2. METHOTREXATE [Concomitant]
  3. STROGENS CONJUGATED [Concomitant]
  4. FLUOXETINE [Concomitant]
  5. ROFECOXIB [Concomitant]
  6. AMOXICILLIN AND CLAVULANATE POTASSIUM [Concomitant]
  7. PARAMOL-118 [Concomitant]
  8. FLUCLOXACILLIN [Concomitant]

REACTIONS (1)
  - RETINAL HAEMORRHAGE [None]
